FAERS Safety Report 9326002 (Version 1)
Quarter: 2013Q2

REPORT INFORMATION
  Report Type: Spontaneous
  Country: US (occurrence: None)
  Receive Date: 20130603
  Receipt Date: 20130603
  Transmission Date: 20140414
  Serious: Yes (Congenital Anomaly)
  Sender: FDA-Public Use
  Company Number: None

PATIENT
  Age: 53 Year
  Sex: Female
  Weight: 48.99 kg

DRUGS (1)
  1. LEVOFLOXACIN [Suspect]
     Indication: SINUSITIS
     Route: 048

REACTIONS (6)
  - Cervical radiculopathy [None]
  - Pain in extremity [None]
  - Pain in extremity [None]
  - Muscular weakness [None]
  - Musculoskeletal pain [None]
  - Pain in extremity [None]
